FAERS Safety Report 16805477 (Version 1)
Quarter: 2019Q4

REPORT INFORMATION
  Report Type: Spontaneous
  Country: US (occurrence: US)
  Receive Date: 20190913
  Receipt Date: 20190913
  Transmission Date: 20200122
  Serious: Yes (Other)
  Sender: FDA-Public Use
  Company Number: None

PATIENT
  Age: 73 Year
  Sex: Male
  Weight: 121.05 kg

DRUGS (15)
  1. CYCLOPHOSPHAMIDE. [Suspect]
     Active Substance: CYCLOPHOSPHAMIDE
     Indication: PLASMA CELL MYELOMA
     Dosage: ?          OTHER FREQUENCY:ONCE WEEKLY;?
     Route: 048
     Dates: start: 20190531, end: 20190913
  2. OMEPRAZOLE. [Concomitant]
     Active Substance: OMEPRAZOLE
  3. HEPARIN [Concomitant]
     Active Substance: HEPARIN SODIUM
  4. LYRICA [Concomitant]
     Active Substance: PREGABALIN
  5. MIDODRINE [Concomitant]
     Active Substance: MIDODRINE
  6. DEXAMETHASONE. [Concomitant]
     Active Substance: DEXAMETHASONE
  7. ROPINIROLE. [Concomitant]
     Active Substance: ROPINIROLE
  8. AMLODIPINE [Concomitant]
     Active Substance: AMLODIPINE BESYLATE
  9. OXYCODONE [Concomitant]
     Active Substance: OXYCODONE
  10. AMIODARONE [Concomitant]
     Active Substance: AMIODARONE
  11. EPOGEN [Concomitant]
     Active Substance: ERYTHROPOIETIN
  12. FOLIC ACID. [Concomitant]
     Active Substance: FOLIC ACID
  13. LEVOTHYROXINE. [Concomitant]
     Active Substance: LEVOTHYROXINE
  14. MIRTAZAPINE. [Concomitant]
     Active Substance: MIRTAZAPINE
  15. VENLAFAXINE [Concomitant]
     Active Substance: VENLAFAXINE HYDROCHLORIDE

REACTIONS (2)
  - Nausea [None]
  - Pancytopenia [None]

NARRATIVE: CASE EVENT DATE: 20190913
